FAERS Safety Report 7260744-3 (Version None)
Quarter: 2011Q1

REPORT INFORMATION
  Report Type: 
  Country: None (occurrence: None)
  Receive Date: 20110130
  Receipt Date: 20101223
  Transmission Date: 20110831
  Serious: No
  Sender: FDA-Public Use
  Company Number: US-ABBOTT-10P-163-0693441-00

PATIENT
  Age: 27 Year
  Sex: Male

DRUGS (5)
  1. HUMIRA [Suspect]
     Indication: CROHN'S DISEASE
     Dates: start: 20101215
  2. HUMIRA [Suspect]
  3. IMURAN [Concomitant]
     Indication: CROHN'S DISEASE
  4. POTASSIUM [Concomitant]
     Indication: MINERAL SUPPLEMENTATION
  5. HUMIRA [Suspect]
     Dosage: DAY 15

REACTIONS (2)
  - MUSCLE SPASMS [None]
  - SWELLING [None]
